FAERS Safety Report 5393050-2 (Version None)
Quarter: 2007Q3

REPORT INFORMATION
  Report Type: 
  Country: None (occurrence: None)
  Receive Date: 20070719
  Receipt Date: 20070705
  Transmission Date: 20080115
  Serious: Yes (Other)
  Sender: FDA-Public Use
  Company Number: RENA-12189

PATIENT
  Age: 48 Year
  Sex: Female
  Weight: 62 kg

DRUGS (5)
  1. RENAGEL [Suspect]
     Indication: HYPERPHOSPHATAEMIA
     Dosage: 3.2 G TID PO
     Route: 048
     Dates: start: 20070401, end: 20070415
  2. MIMPARA [Concomitant]
  3. LASIX [Concomitant]
  4. MOPRAL. MFR: ASTRA PHARMACEUTICAL PRODUCTS [Concomitant]
  5. DOPIFRANE. MFR: BOTTU LABS [Concomitant]

REACTIONS (2)
  - OVARIAN CANCER METASTATIC [None]
  - PRURITUS [None]
